FAERS Safety Report 14116944 (Version 15)
Quarter: 2018Q3

REPORT INFORMATION
  Report Type: Spontaneous
  Country: AU (occurrence: AU)
  Receive Date: 20171023
  Receipt Date: 20180710
  Transmission Date: 20181010
  Serious: Yes (Hospitalization, Other)
  Sender: FDA-Public Use
  Company Number: AU-PFIZER INC-2017397602

PATIENT
  Age: 67 Year
  Sex: Male

DRUGS (18)
  1. LANTUS [Concomitant]
     Active Substance: INSULIN GLARGINE
     Indication: DIABETES MELLITUS
     Dosage: 14 UNITS, 1X/DAY (IN EVENING)
     Route: 058
  2. DESVENLAFAXINE. [Concomitant]
     Active Substance: DESVENLAFAXINE
     Indication: AFFECTIVE DISORDER
     Dosage: 50MG, 1X/DAY (1 IN MORNING)
  3. SITAGLIPTIN METFORMIN [Concomitant]
     Active Substance: METFORMIN HYDROCHLORIDE\SITAGLIPTIN PHOSPHATE
     Indication: DIABETES MELLITUS
     Dosage: 50/1000MG 2XDAY WITH FOOD (1 IN MORNING, 1 IN EVENING)
  4. ATORVASTATIN [Concomitant]
     Active Substance: ATORVASTATIN
     Indication: PROPHYLAXIS
     Dosage: 80MG, 1X/DAY (1 IN EVENING)
  5. ASPIRIN. [Concomitant]
     Active Substance: ASPIRIN
     Indication: PROPHYLAXIS
     Dosage: 100MG, 1X/DAY (1 IN MORNING)
  6. XARELTO [Concomitant]
     Active Substance: RIVAROXABAN
     Dosage: 20 MG, UNK
  7. APO PERINDOPRIL [Concomitant]
     Indication: HYPERTENSION
     Dosage: 8MG, 1X/DAY IN THE MORNING
  8. CHAMPIX [Suspect]
     Active Substance: VARENICLINE TARTRATE
     Dosage: UNK
  9. NITROLINGUAL [Concomitant]
     Active Substance: NITROGLYCERIN
     Indication: CHEST PAIN
  10. METOPROLOL. [Concomitant]
     Active Substance: METOPROLOL
     Indication: BLOOD PRESSURE INCREASED
     Dosage: 50 MG, 2X/DAY, 1 TABLET, 2X/DAY (1 IN MORNING, 1 IN EVENING)
  11. ATORVASTATIN [Concomitant]
     Active Substance: ATORVASTATIN
     Indication: BLOOD CHOLESTEROL INCREASED
  12. SIFROL [Concomitant]
     Active Substance: PRAMIPEXOLE
     Indication: PARKINSON^S DISEASE
     Dosage: 0.375MG, 1X/DAY (1 IN MORNING)
  13. METOPROLOL. [Concomitant]
     Active Substance: METOPROLOL
     Indication: HEART RATE IRREGULAR
  14. OMEPRAZOLE MAGNESIUM. [Concomitant]
     Active Substance: OMEPRAZOLE MAGNESIUM
     Indication: GASTROOESOPHAGEAL REFLUX DISEASE
     Dosage: 20 MG, 2X/DAY, 1 TABLET, 2X/DAY (1 IN MORNING, 1 IN EVENING)
  15. APO PERINDOPRIL [Concomitant]
     Dosage: 4 MG, IN THE MORNING
  16. AZILECT [Concomitant]
     Active Substance: RASAGILINE MESYLATE
     Indication: PARKINSON^S DISEASE
     Dosage: 1MG, 1X/DAY (1 IN MORNING)
  17. LEVODOPA/CARBIDOPA [Concomitant]
     Active Substance: CARBIDOPA\LEVODOPA
     Indication: PARKINSON^S DISEASE
     Dosage: 100/25MG, 4X/DAY (AT 7AM, 11AM, 3PM AND 7PM)
  18. NITROLINGUAL [Concomitant]
     Active Substance: NITROGLYCERIN
     Indication: ANGINA PECTORIS
     Dosage: 400 UG, AS NEEDED ?1 SPRAY, AS NEEDED (REPEAT AFTER 5 MINUTES IF REQUIRED)
     Route: 060

REACTIONS (9)
  - Paralysis [Unknown]
  - Anxiety [Unknown]
  - Brain stem infarction [Unknown]
  - Blindness unilateral [Unknown]
  - Cerebrovascular accident [Unknown]
  - Parkinson^s disease [Unknown]
  - Loss of personal independence in daily activities [Not Recovered/Not Resolved]
  - Arrhythmia [Unknown]
  - Condition aggravated [Unknown]
